FAERS Safety Report 4654711-3 (Version None)
Quarter: 2005Q2

REPORT INFORMATION
  Report Type: 
  Country: None (occurrence: None)
  Receive Date: 20050506
  Receipt Date: 20050428
  Transmission Date: 20051028
  Serious: Yes (Disabling)
  Sender: FDA-Public Use
  Company Number: 200511496FR

PATIENT
  Age: 62 Year
  Sex: Female

DRUGS (10)
  1. TORENTAL [Suspect]
     Route: 048
  2. BUFLOMEDIL [Suspect]
     Route: 048
  3. BISOPROLOL FUMARATE [Suspect]
     Route: 048
  4. PLAVIX [Suspect]
     Route: 048
  5. PLAQUENIL [Suspect]
     Indication: SYSTEMIC LUPUS ERYTHEMATOSUS
     Route: 048
     Dates: start: 19910101, end: 20041015
  6. AMLOR [Suspect]
     Route: 048
  7. TARDYFERON [Concomitant]
     Route: 048
  8. TRIATEC [Concomitant]
     Route: 048
  9. NEORECORMON [Concomitant]
     Route: 058
  10. LASILIX [Concomitant]

REACTIONS (3)
  - RETINOPATHY [None]
  - SCOTOMA [None]
  - VISUAL ACUITY REDUCED [None]
